FAERS Safety Report 25237373 (Version 1)
Quarter: 2025Q2

REPORT INFORMATION
  Report Type: Spontaneous
  Country: CN (occurrence: CN)
  Receive Date: 20250425
  Receipt Date: 20250425
  Transmission Date: 20250716
  Serious: Yes (Hospitalization, Other)
  Sender: JOHNSON AND JOHNSON
  Company Number: CN-BAYER-2025A055952

PATIENT
  Age: 84 Year
  Sex: Female
  Weight: 38 kg

DRUGS (1)
  1. XARELTO [Suspect]
     Active Substance: RIVAROXABAN
     Indication: Atrial fibrillation
     Dosage: 1 DF, QD
     Route: 048
     Dates: start: 20250102, end: 20250419

REACTIONS (19)
  - Peptic ulcer [Unknown]
  - Upper gastrointestinal haemorrhage [Recovering/Resolving]
  - Melaena [Unknown]
  - Blood loss anaemia [Recovering/Resolving]
  - Prescribed underdose [Unknown]
  - Underdose [Unknown]
  - Dizziness [Unknown]
  - Asthenia [Unknown]
  - Mean cell volume increased [Unknown]
  - Haematocrit decreased [Unknown]
  - White blood cell count decreased [Unknown]
  - Protein total decreased [Unknown]
  - Blood albumin decreased [Unknown]
  - Blood urea increased [Unknown]
  - Blood potassium decreased [Unknown]
  - Blood calcium decreased [Unknown]
  - Blood glucose increased [Unknown]
  - Blood creatine phosphokinase increased [Unknown]
  - Blood cholinesterase decreased [Unknown]

NARRATIVE: CASE EVENT DATE: 20250102
